FAERS Safety Report 4686526-4 (Version None)
Quarter: 2005Q2

REPORT INFORMATION
  Report Type: 
  Country: None (occurrence: None)
  Receive Date: 20050606
  Receipt Date: 20050524
  Transmission Date: 20051028
  Serious: Yes (Other)
  Sender: FDA-Public Use
  Company Number: USA05058901

PATIENT
  Age: 72 Year
  Sex: Female

DRUGS (3)
  1. FORTEO [Suspect]
     Indication: OSTEOPOROSIS
     Dates: start: 20041208
  2. NEXIUM [Concomitant]
  3. DARVOCET [Concomitant]

REACTIONS (11)
  - ABDOMINAL DISCOMFORT [None]
  - ARTERIOSCLEROSIS [None]
  - BALANCE DISORDER [None]
  - DIARRHOEA [None]
  - HYPERTENSION [None]
  - LETHARGY [None]
  - PHARMACEUTICAL PRODUCT COMPLAINT [None]
  - STOMACH DISCOMFORT [None]
  - TREATMENT NONCOMPLIANCE [None]
  - URINE ANALYSIS ABNORMAL [None]
  - URINE ODOUR ABNORMAL [None]
